FAERS Safety Report 11399889 (Version 1)
Quarter: 2015Q3

REPORT INFORMATION
  Report Type: Spontaneous
  Country: US (occurrence: None)
  Receive Date: 20150805
  Receipt Date: 20150805
  Transmission Date: 20151125
  Serious: Yes (Hospitalization)
  Sender: FDA-Public Use
  Company Number: GTI002439

PATIENT
  Age: 14 Month
  Sex: Male
  Weight: 10.4 kg

DRUGS (5)
  1. FOLY VI SOL [Concomitant]
  2. GAMUNEX-C [Suspect]
     Active Substance: HUMAN IMMUNOGLOBULIN G
     Indication: ENGRAFT FAILURE
     Dosage: 10.4 GM
     Route: 042
     Dates: start: 20140714, end: 20140714
  3. ACYCLOVIR. [Concomitant]
     Active Substance: ACYCLOVIR
  4. TYLENOL [Concomitant]
     Active Substance: ACETAMINOPHEN
  5. FLUCONAZOLE. [Concomitant]
     Active Substance: FLUCONAZOLE

REACTIONS (2)
  - Haemolysis [None]
  - Eye swelling [None]

NARRATIVE: CASE EVENT DATE: 20140718
